FAERS Safety Report 26027514 (Version 1)
Quarter: 2025Q4

REPORT INFORMATION
  Report Type: Spontaneous
  Country: JP (occurrence: JP)
  Receive Date: 20251111
  Receipt Date: 20251111
  Transmission Date: 20260117
  Serious: Yes (Other)
  Sender: NOVARTIS
  Company Number: JP-002147023-NVSJ2025JP010806

PATIENT
  Age: 44 Year
  Sex: Male

DRUGS (1)
  1. CYCLOSPORINE [Suspect]
     Active Substance: CYCLOSPORINE
     Indication: Pityriasis rubra pilaris
     Dosage: 3 MG/KG
     Route: 065

REACTIONS (2)
  - Dermatitis exfoliative generalised [Recovered/Resolved]
  - Off label use [Unknown]
